FAERS Safety Report 9546926 (Version 1)
Quarter: 2013Q3

REPORT INFORMATION
  Report Type: Spontaneous
  Country: US (occurrence: None)
  Receive Date: 20130920
  Receipt Date: 20130920
  Transmission Date: 20140515
  Serious: Yes (Death)
  Sender: FDA-Public Use
  Company Number: 2013-US-000642

PATIENT
  Age: 54 Year
  Sex: Female

DRUGS (1)
  1. FAZACLO [Suspect]
     Dosage: 300-500MG, QD, ORAL
     Route: 048

REACTIONS (2)
  - Toxicity to various agents [None]
  - Acute endocarditis [None]
